FAERS Safety Report 4972331-8 (Version None)
Quarter: 2006Q1

REPORT INFORMATION
  Report Type: 
  Country: None (occurrence: None)
  Receive Date: 20060215
  Receipt Date: 20051212
  Transmission Date: 20060701
  Serious: No
  Sender: FDA-Public Use
  Company Number: US200512001645

PATIENT
  Age: 77 Year
  Sex: Male

DRUGS (3)
  1. CIALIS [Suspect]
     Indication: LOSS OF LIBIDO
     Dosage: 20 MG, AS NEEDED
     Dates: start: 20051122
  2. ATENOLOL [Concomitant]
  3. SIMVASTATIN [Concomitant]

REACTIONS (4)
  - ABDOMINAL PAIN UPPER [None]
  - FAECES DISCOLOURED [None]
  - FLUSHING [None]
  - THERAPEUTIC RESPONSE DECREASED [None]
